FAERS Safety Report 15772509 (Version 5)
Quarter: 2022Q1

REPORT INFORMATION
  Report Type: Spontaneous
  Country: JP (occurrence: JP)
  Receive Date: 20181228
  Receipt Date: 20220126
  Transmission Date: 20220423
  Serious: Yes (Life-Threatening, Hospitalization, Other)
  Sender: FDA-Public Use
  Company Number: JP-MSD-M2018-40585

PATIENT
  Age: 74 Year
  Sex: Male
  Weight: 39 kg

DRUGS (1)
  1. KEYTRUDA [Suspect]
     Active Substance: PEMBROLIZUMAB
     Indication: Bladder cancer
     Dosage: 200 MILLIGRAM, Q3W
     Route: 041
     Dates: start: 20180531, end: 20180921

REACTIONS (7)
  - Respiratory failure [Recovering/Resolving]
  - Tubulointerstitial nephritis [Recovering/Resolving]
  - Adrenal insufficiency [Not Recovered/Not Resolved]
  - Sepsis [Recovering/Resolving]
  - Disseminated intravascular coagulation [Recovering/Resolving]
  - Septic shock [Recovering/Resolving]
  - Pyelonephritis [Recovering/Resolving]

NARRATIVE: CASE EVENT DATE: 20181012
